FAERS Safety Report 24220168 (Version 1)
Quarter: 2024Q3

REPORT INFORMATION
  Report Type: Spontaneous
  Country: CN (occurrence: CN)
  Receive Date: 20240817
  Receipt Date: 20240817
  Transmission Date: 20241017
  Serious: Yes (Hospitalization)
  Sender: ACCORD
  Company Number: None

PATIENT
  Age: 51 Year
  Sex: Female
  Weight: 55 kg

DRUGS (1)
  1. TRASTUZUMAB [Suspect]
     Active Substance: TRASTUZUMAB
     Indication: Breast cancer
     Dosage: 330 MILLIGRAM, QD
     Route: 042
     Dates: start: 20240720, end: 20240720

REACTIONS (1)
  - Urticaria papular [Not Recovered/Not Resolved]

NARRATIVE: CASE EVENT DATE: 20240723
